FAERS Safety Report 16650896 (Version 1)
Quarter: 2019Q3

REPORT INFORMATION
  Report Type: Report from Study
  Country: BE (occurrence: BE)
  Receive Date: 20190731
  Receipt Date: 20190731
  Transmission Date: 20191004
  Serious: Yes (Other)
  Sender: FDA-Public Use
  Company Number: BE-ACCORD-149870

PATIENT
  Age: 21 Year
  Sex: Female

DRUGS (7)
  1. TIGECYCLINE. [Suspect]
     Active Substance: TIGECYCLINE
     Indication: MYCOBACTERIUM ABSCESSUS INFECTION
     Route: 042
  2. LINEZOLID. [Suspect]
     Active Substance: LINEZOLID
     Indication: MYCOBACTERIUM ABSCESSUS INFECTION
     Route: 065
  3. BEDAQUILINE [Suspect]
     Active Substance: BEDAQUILINE
     Indication: MYCOBACTERIUM ABSCESSUS INFECTION
     Dosage: UNK
     Route: 065
  4. IMIPENEM [Suspect]
     Active Substance: IMIPENEM
     Indication: LUNG INFECTION
     Dosage: UNK
     Route: 042
  5. CLOFAZIMINE [Suspect]
     Active Substance: CLOFAZIMINE
     Indication: MYCOBACTERIUM ABSCESSUS INFECTION
     Dosage: UNK
     Route: 048
  6. AMIKACIN. [Suspect]
     Active Substance: AMIKACIN
     Indication: LUNG INFECTION
     Dosage: UNK
     Route: 065
  7. AZITHROMYCIN ANHYDROUS. [Suspect]
     Active Substance: AZITHROMYCIN ANHYDROUS
     Indication: LUNG INFECTION
     Dosage: UNK
     Route: 048

REACTIONS (4)
  - Deafness [Unknown]
  - Vomiting [Unknown]
  - Nausea [Unknown]
  - Hepatotoxicity [Unknown]
